FAERS Safety Report 8484399-5 (Version None)
Quarter: 2012Q3

REPORT INFORMATION
  Report Type: 
  Country: None (occurrence: None)
  Receive Date: 20120703
  Receipt Date: 20120628
  Transmission Date: 20120928
  Serious: Yes (Other)
  Sender: FDA-Public Use
  Company Number: PHHY2012FR051734

PATIENT
  Sex: Female
  Weight: 22 kg

DRUGS (1)
  1. RITALIN [Suspect]
     Indication: ATTENTION DEFICIT/HYPERACTIVITY DISORDER
     Dosage: 5 MG IN THE MORNING AND AT MIDDAY
     Dates: start: 20100401, end: 20120301

REACTIONS (5)
  - DECREASED APPETITE [None]
  - HEPATITIS [None]
  - JAUNDICE [None]
  - CACHEXIA [None]
  - ASTHENIA [None]
